FAERS Safety Report 5817554-0 (Version None)
Quarter: 2008Q3

REPORT INFORMATION
  Report Type: 
  Country: None (occurrence: None)
  Receive Date: 20080722
  Receipt Date: 20080709
  Transmission Date: 20090109
  Serious: Yes (Other)
  Sender: FDA-Public Use
  Company Number: PHEH2002US08475

PATIENT
  Sex: Female
  Weight: 51.701 kg

DRUGS (2)
  1. GLEEVEC [Suspect]
     Indication: CHRONIC MYELOID LEUKAEMIA
     Dosage: 400 MG, UNK
     Route: 048
     Dates: start: 20011101, end: 20020901
  2. HYDROXYCARBAMIDE [Suspect]
     Indication: CHRONIC MYELOID LEUKAEMIA
     Dosage: 500 MG, TID
     Route: 048
     Dates: start: 20011001

REACTIONS (14)
  - ANXIETY [None]
  - BLOOD PRESSURE INCREASED [None]
  - BLOOD URIC ACID INCREASED [None]
  - BRONCHITIS [None]
  - CHORIOAMNIONITIS [None]
  - DRUG EXPOSURE DURING PREGNANCY [None]
  - DYSPNOEA [None]
  - FEELING HOT [None]
  - HEADACHE [None]
  - POSTPARTUM DEPRESSION [None]
  - PYREXIA [None]
  - SEROMA [None]
  - TACHYCARDIA FOETAL [None]
  - WHITE BLOOD CELL COUNT INCREASED [None]
